FAERS Safety Report 7380507-8 (Version None)
Quarter: 2011Q1

REPORT INFORMATION
  Report Type: 
  Country: None (occurrence: None)
  Receive Date: 20110321
  Receipt Date: 20110309
  Transmission Date: 20110831
  Serious: Yes (Other)
  Sender: FDA-Public Use
  Company Number: 014761

PATIENT
  Sex: Female
  Weight: 65.3 kg

DRUGS (4)
  1. CIMZIA [Suspect]
     Indication: CROHN'S DISEASE
     Dosage: 400 MG 1X4 WEEKS, SUBCUTANEOUS
     Route: 058
     Dates: start: 20090101, end: 20100801
  2. CIMZIA [Suspect]
     Indication: CROHN'S DISEASE
     Dosage: 400 MG 1X4 WEEKS, SUBCUTANEOUS
     Route: 058
     Dates: start: 20100101
  3. CIMZIA [Suspect]
     Indication: CROHN'S DISEASE
     Dosage: 400 MG 1X4 WEEKS, SUBCUTANEOUS
     Route: 058
     Dates: start: 20100101, end: 20100905
  4. PRENATAL VITAMINS [Concomitant]

REACTIONS (6)
  - CROHN'S DISEASE [None]
  - INFREQUENT BOWEL MOVEMENTS [None]
  - CAESAREAN SECTION [None]
  - PREGNANCY [None]
  - DRUG EXPOSURE DURING PREGNANCY [None]
  - CONDITION AGGRAVATED [None]
